FAERS Safety Report 10152491 (Version 1)
Quarter: 2014Q2

REPORT INFORMATION
  Report Type: Spontaneous
  Country: US (occurrence: US)
  Receive Date: 20140505
  Receipt Date: 20140505
  Transmission Date: 20141212
  Serious: No
  Sender: FDA-Public Use
  Company Number: US-ASTRAZENECA-2013SE62900

PATIENT
  Sex: Female

DRUGS (2)
  1. OMEPRAZOLE (SANDOZ) [Suspect]
     Route: 065
     Dates: start: 2012
  2. OTHER PRODUCT [Suspect]
     Route: 065

REACTIONS (4)
  - Blood electrolytes abnormal [Unknown]
  - Diabetes mellitus [Unknown]
  - Weight decreased [Unknown]
  - Adverse event [Unknown]
